FAERS Safety Report 6828972-6 (Version None)
Quarter: 2010Q3

REPORT INFORMATION
  Report Type: 
  Country: None (occurrence: None)
  Receive Date: 20100709
  Receipt Date: 20070226
  Transmission Date: 20110219
  Serious: No
  Sender: FDA-Public Use
  Company Number: US-PFIZER INC-2007010090

PATIENT
  Sex: Female
  Weight: 77.11 kg

DRUGS (4)
  1. CHANTIX [Suspect]
     Indication: SMOKING CESSATION THERAPY
     Route: 048
     Dates: start: 20070111, end: 20070101
  2. NEURONTIN [Concomitant]
     Route: 048
  3. LAMICTAL [Concomitant]
     Route: 048
  4. KLONOPIN [Concomitant]
     Route: 048

REACTIONS (4)
  - ABDOMINAL PAIN UPPER [None]
  - FLATULENCE [None]
  - HEADACHE [None]
  - HEART RATE INCREASED [None]
